FAERS Safety Report 7372410-4 (Version None)
Quarter: 2011Q1

REPORT INFORMATION
  Report Type: 
  Country: None (occurrence: None)
  Receive Date: 20110324
  Receipt Date: 20100817
  Transmission Date: 20110831
  Serious: No
  Sender: FDA-Public Use
  Company Number: PHHY2010DE77591

PATIENT
  Sex: Female

DRUGS (1)
  1. EXTAVIA [Suspect]
     Indication: MULTIPLE SCLEROSIS
     Dosage: 1 ML, QOD
     Dates: start: 20100602

REACTIONS (2)
  - TOOTH DISORDER [None]
  - MUSCULAR WEAKNESS [None]
